FAERS Safety Report 23461085 (Version 5)
Quarter: 2025Q1

REPORT INFORMATION
  Report Type: Spontaneous
  Country: US (occurrence: US)
  Receive Date: 20240131
  Receipt Date: 20250106
  Transmission Date: 20250409
  Serious: Yes (Other)
  Sender: SANOFI AVENTIS
  Company Number: US-SA-SAC20240125000791

PATIENT
  Age: 73 Year
  Sex: Male

DRUGS (5)
  1. DUPIXENT [Suspect]
     Active Substance: DUPILUMAB
     Indication: Dermatitis atopic
     Dosage: 300 MG, QOW
     Route: 058
  2. DUPIXENT [Suspect]
     Active Substance: DUPILUMAB
     Indication: Drug therapy
  3. VITAMIN C [Concomitant]
     Active Substance: ASCORBIC ACID
  4. TACROLIMUS [Concomitant]
     Active Substance: TACROLIMUS
  5. LOTEMAX [Concomitant]
     Active Substance: LOTEPREDNOL ETABONATE

REACTIONS (18)
  - Glaucoma [Unknown]
  - Vision blurred [Unknown]
  - Eye pruritus [Unknown]
  - Anaphylactic shock [Unknown]
  - Foaming at mouth [Unknown]
  - Arthritis [Not Recovered/Not Resolved]
  - Dry skin [Not Recovered/Not Resolved]
  - Pruritus [Unknown]
  - Skin fissures [Unknown]
  - Skin exfoliation [Unknown]
  - Injection site swelling [Unknown]
  - Injection site pain [Unknown]
  - Dizziness [Not Recovered/Not Resolved]
  - Vomiting [Not Recovered/Not Resolved]
  - Concussion [Not Recovered/Not Resolved]
  - Sleep disorder due to a general medical condition [Not Recovered/Not Resolved]
  - Head injury [Not Recovered/Not Resolved]
  - Product use in unapproved indication [Unknown]
